FAERS Safety Report 4864879-1 (Version None)
Quarter: 2005Q4

REPORT INFORMATION
  Report Type: 
  Country: None (occurrence: None)
  Receive Date: 20051201
  Receipt Date: 20050811
  Transmission Date: 20060501
  Serious: No
  Sender: FDA-Public Use
  Company Number: 2005PV001100

PATIENT
  Age: 71 Year
  Sex: Female
  Weight: 69.4003 kg

DRUGS (9)
  1. BYETTA [Suspect]
     Indication: DIABETES MELLITUS NON-INSULIN-DEPENDENT
     Dosage: 5 MCG; BID; SC
     Route: 058
     Dates: start: 20050808
  2. SYNTHROID [Concomitant]
  3. NORVASC [Concomitant]
  4. ACCUPRIL [Concomitant]
  5. TOPROL-XL [Concomitant]
  6. GLUCOPHAGE [Concomitant]
  7. DITROPAN [Concomitant]
  8. HYDROCHLOROTHIAZIDE [Concomitant]
  9. ASPIRIN [Concomitant]

REACTIONS (6)
  - DIZZINESS [None]
  - DRUG INEFFECTIVE [None]
  - HEADACHE [None]
  - INCREASED UPPER AIRWAY SECRETION [None]
  - INFLUENZA LIKE ILLNESS [None]
  - NAUSEA [None]
